FAERS Safety Report 8299033-7 (Version None)
Quarter: 2012Q2

REPORT INFORMATION
  Report Type: 
  Country: None (occurrence: None)
  Receive Date: 20120419
  Receipt Date: 20120412
  Transmission Date: 20120825
  Serious: Yes (Other)
  Sender: FDA-Public Use
  Company Number: US-PFIZER INC-2012091909

PATIENT
  Sex: Female
  Weight: 55.329 kg

DRUGS (5)
  1. NEURONTIN [Suspect]
     Indication: NEURALGIA
     Dosage: 300 MG, 3X/DAY
     Route: 048
  2. NEURONTIN [Suspect]
     Indication: FIBROMYALGIA
  3. NEURONTIN [Suspect]
     Indication: HYPOKINESIA
  4. LORTAB [Concomitant]
     Indication: PAIN
     Dosage: UNK
  5. XANAX [Concomitant]
     Indication: INSOMNIA
     Dosage: UNK

REACTIONS (7)
  - NAUSEA [None]
  - ABNORMAL BEHAVIOUR [None]
  - MUSCULOSKELETAL DISORDER [None]
  - HEART RATE INCREASED [None]
  - ABDOMINAL DISCOMFORT [None]
  - DRUG INEFFECTIVE [None]
  - HYPERHIDROSIS [None]
